FAERS Safety Report 8390700-3 (Version None)
Quarter: 2012Q2

REPORT INFORMATION
  Report Type: 
  Country: None (occurrence: None)
  Receive Date: 20120529
  Receipt Date: 20120523
  Transmission Date: 20120825
  Serious: Yes (Other)
  Sender: FDA-Public Use
  Company Number: PHHY2012GB044027

PATIENT
  Age: 46 Year
  Sex: Male

DRUGS (3)
  1. LEVETIRACETAM [Suspect]
     Indication: EPILEPSY
     Dosage: UNK
     Route: 048
     Dates: start: 20090401
  2. ALBUTEROL [Concomitant]
     Indication: ASTHMA
  3. FLUTICASONE PROPIONATE/SALMETEROL [Concomitant]
     Indication: ASTHMA

REACTIONS (4)
  - WHEEZING [None]
  - DYSGEUSIA [None]
  - COUGH [None]
  - GASTROOESOPHAGEAL REFLUX DISEASE [None]
